FAERS Safety Report 11646224 (Version 2)
Quarter: 2016Q2

REPORT INFORMATION
  Report Type: Spontaneous
  Country: US (occurrence: US)
  Receive Date: 20151020
  Receipt Date: 20160429
  Transmission Date: 20160815
  Serious: No
  Sender: FDA-Public Use
  Company Number: US-ROCHE-1605579

PATIENT
  Age: 65 Year
  Sex: Male
  Weight: 77.18 kg

DRUGS (7)
  1. PREDNISONE. [Suspect]
     Active Substance: PREDNISONE
     Indication: LUNG INFECTION
  2. PREDNISONE. [Suspect]
     Active Substance: PREDNISONE
     Indication: COUGH
     Route: 048
  3. ESBRIET [Suspect]
     Active Substance: PIRFENIDONE
     Indication: IDIOPATHIC PULMONARY FIBROSIS
     Route: 048
     Dates: start: 20150430, end: 20150522
  4. ESBRIET [Suspect]
     Active Substance: PIRFENIDONE
     Indication: EMPHYSEMA
  5. SYNTHROID [Concomitant]
     Active Substance: LEVOTHYROXINE SODIUM
     Route: 048
  6. PREDNISONE. [Suspect]
     Active Substance: PREDNISONE
     Indication: LUNG DISORDER
  7. BENZONATATE. [Concomitant]
     Active Substance: BENZONATATE
     Route: 048

REACTIONS (6)
  - Rash [Recovered/Resolved]
  - Lung infection [Unknown]
  - Lung disorder [Unknown]
  - Cough [Unknown]
  - Anxiety [Unknown]
  - Insomnia [Unknown]

NARRATIVE: CASE EVENT DATE: 20150522
